FAERS Safety Report 14862424 (Version 1)
Quarter: 2018Q2

REPORT INFORMATION
  Report Type: Spontaneous
  Country: US (occurrence: US)
  Receive Date: 20180508
  Receipt Date: 20180508
  Transmission Date: 20180711
  Serious: No
  Sender: FDA-Public Use
  Company Number: US-ALKERMES INC.-ALK-2017-001578

PATIENT
  Age: 25 Year
  Weight: 72.56 kg

DRUGS (3)
  1. OTHER THERAPEUTIC PRODUCTS [Concomitant]
     Active Substance: UNSPECIFIED INGREDIENT
     Indication: PRODUCT USED FOR UNKNOWN INDICATION
     Dosage: 25 MG, UNK
  2. AMITRIPTYLINE [Concomitant]
     Active Substance: AMITRIPTYLINE
     Indication: PRODUCT USED FOR UNKNOWN INDICATION
     Dosage: 25 MG, UNK
  3. VIVITROL [Suspect]
     Active Substance: NALTREXONE
     Indication: DRUG DEPENDENCE
     Dosage: 380 MG, QMO
     Route: 030
     Dates: start: 20170407

REACTIONS (7)
  - Apathy [Unknown]
  - Anxiety [Unknown]
  - Alcohol use [Unknown]
  - Increased appetite [Recovered/Resolved]
  - Substance abuse [Unknown]
  - Depression [Recovering/Resolving]
  - Hyperphagia [Unknown]

NARRATIVE: CASE EVENT DATE: 201704
